FAERS Safety Report 21312162 (Version 2)
Quarter: 2024Q3

REPORT INFORMATION
  Report Type: Spontaneous
  Country: US (occurrence: None)
  Receive Date: 20220909
  Receipt Date: 20240906
  Transmission Date: 20241017
  Serious: No
  Sender: DOMPE FARMACEUTICI
  Company Number: US-ARIS GLOBAL-202204-0742

PATIENT
  Age: 75 Year
  Sex: Female

DRUGS (21)
  1. OXERVATE [Suspect]
     Active Substance: CENEGERMIN-BKBJ
     Indication: Neurotrophic keratopathy
     Route: 047
     Dates: start: 20220404
  2. OXERVATE [Suspect]
     Active Substance: CENEGERMIN-BKBJ
     Route: 047
     Dates: start: 20230712
  3. OXERVATE [Suspect]
     Active Substance: CENEGERMIN-BKBJ
  4. OXERVATE [Suspect]
     Active Substance: CENEGERMIN-BKBJ
  5. OXERVATE [Suspect]
     Active Substance: CENEGERMIN-BKBJ
  6. PROLIA [Concomitant]
     Active Substance: DENOSUMAB
     Dosage: SYRINGE
  7. CALCIUM [Concomitant]
     Active Substance: CALCIUM
     Dosage: 500 (1250)
  8. VITAMIN C [Concomitant]
     Active Substance: ASCORBIC ACID
  9. RETAINE MGD [Concomitant]
     Active Substance: LIGHT MINERAL OIL\MINERAL OIL
     Dosage: 0.5 %-0.5%
  10. PREDNISOLONE-NEPAFENAC [Concomitant]
  11. VITAMIN D3 [Concomitant]
     Active Substance: CHOLECALCIFEROL
     Dosage: 2000 (IU) 50 MCG
  12. ASPIRIN [Concomitant]
     Active Substance: ASPIRIN
  13. COENZYME Q-10 [Concomitant]
     Dosage: 100 MG -5
  14. MAGNESIUM [Concomitant]
     Active Substance: MAGNESIUM
  15. METHOTREXATE [Concomitant]
     Active Substance: METHOTREXATE
     Dosage: VIAL
  16. ORENCIA [Concomitant]
     Active Substance: ABATACEPT
     Dosage: SYRINGE
  17. LIOTHYRONINE SODIUM [Concomitant]
     Active Substance: LIOTHYRONINE SODIUM
  18. SERTRALINE HYDROCHLORIDE [Concomitant]
     Active Substance: SERTRALINE HYDROCHLORIDE
  19. SIMVASTATIN [Concomitant]
     Active Substance: SIMVASTATIN
  20. ERYTHROMYCIN [Concomitant]
     Active Substance: ERYTHROMYCIN
  21. DEXAMETHASONE\NEOMYCIN\POLYMYXIN B SULFATE [Concomitant]
     Active Substance: DEXAMETHASONE\NEOMYCIN\POLYMYXIN B SULFATE

REACTIONS (7)
  - Eye pain [Unknown]
  - Ocular hyperaemia [Unknown]
  - Eye swelling [Unknown]
  - Hordeolum [Unknown]
  - Drug ineffective [Unknown]
  - Accidental overdose [Unknown]
  - Product use complaint [Unknown]

NARRATIVE: CASE EVENT DATE: 20220423
